FAERS Safety Report 17996419 (Version 4)
Quarter: 2023Q1

REPORT INFORMATION
  Report Type: Spontaneous
  Country: GB (occurrence: None)
  Receive Date: 20200709
  Receipt Date: 20230220
  Transmission Date: 20230418
  Serious: Yes (Hospitalization, Disabling, Other)
  Sender: FDA-Public Use
  Company Number: GB-MERCK HEALTHCARE KGAA-9173142

PATIENT
  Sex: Female

DRUGS (1)
  1. REBIF [Suspect]
     Active Substance: INTERFERON BETA-1A
     Indication: Multiple sclerosis
     Dosage: REBIF 44MICROGRAMS/0.5ML (12MILLION UNITS) SOLUTION FOR INJECTION PRE-FILLED SYRINGES (REBIJECT)
     Route: 058

REACTIONS (7)
  - Poor peripheral circulation [Unknown]
  - Cystitis [Unknown]
  - Infection [Unknown]
  - Incoherent [Unknown]
  - Limb injury [Unknown]
  - Nail discolouration [Unknown]
  - Bedridden [Unknown]
